FAERS Safety Report 21283238 (Version 1)
Quarter: 2022Q3

REPORT INFORMATION
  Report Type: Spontaneous
  Country: US (occurrence: None)
  Receive Date: 20220901
  Receipt Date: 20220901
  Transmission Date: 20221027
  Serious: No
  Sender: FDA-Public Use
  Company Number: None

PATIENT

DRUGS (1)
  1. EPINEPHRINE [Suspect]
     Active Substance: EPINEPHRINE
     Dosage: OTHER STRENGTH : 0.3MG/KG;?

REACTIONS (5)
  - Incorrect dose administered [None]
  - Cyanosis [None]
  - Tachycardia [None]
  - Somnolence [None]
  - Incorrect route of product administration [None]
